FAERS Safety Report 8782116 (Version 1)
Quarter: 2012Q4

REPORT INFORMATION
  Report Type: Report from Study
  Country: US (occurrence: US)
  Receive Date: 20120913
  Receipt Date: 20120913
  Transmission Date: 20130627
  Serious: No
  Sender: FDA-Public Use
  Company Number: US-VERTEX PHARMACEUTICAL INC.-AE-2012-008741

PATIENT

DRUGS (11)
  1. INCIVEK [Suspect]
     Indication: HEPATITIS C
     Route: 048
     Dates: start: 20120416
  2. PEGASYS [Concomitant]
     Indication: HEPATITIS C
     Route: 058
     Dates: start: 20120416
  3. RIBASPHERE [Concomitant]
     Indication: HEPATITIS C
     Dates: start: 20120416
  4. CIALIS [Concomitant]
     Route: 048
  5. HUMALOG MIX 75-25 [Concomitant]
     Route: 058
  6. SINGULAIR [Concomitant]
     Route: 048
  7. NADOLOL [Concomitant]
  8. LOVAZA [Concomitant]
  9. WELCHOL [Concomitant]
  10. BENICAR HCT6 [Concomitant]
  11. DEXILANT DR [Concomitant]

REACTIONS (1)
  - Malaise [Unknown]
